FAERS Safety Report 19471292 (Version 1)
Quarter: 2021Q2

REPORT INFORMATION
  Report Type: Spontaneous
  Country: DE (occurrence: DE)
  Receive Date: 20210629
  Receipt Date: 20210629
  Transmission Date: 20210717
  Serious: Yes (Life-Threatening)
  Sender: FDA-Public Use
  Company Number: DE-AUROBINDO-AUR-APL-2021-026912

PATIENT

DRUGS (25)
  1. RITUXIMAB. [Suspect]
     Active Substance: RITUXIMAB
     Indication: DIFFUSE LARGE B-CELL LYMPHOMA
     Dosage: 1400 MILLIGRAM (1400 MG ABS (DAY 0, R?MTX X 4 CYCLES)
     Route: 058
  2. VINCRISTINE [Suspect]
     Active Substance: VINCRISTINE
     Indication: CENTRAL NERVOUS SYSTEM LYMPHOMA
     Dosage: UNK
     Route: 065
  3. PREDNISONE. [Suspect]
     Active Substance: PREDNISONE
     Indication: CENTRAL NERVOUS SYSTEM LYMPHOMA
     Dosage: UNK
     Route: 065
  4. RITUXIMAB. [Suspect]
     Active Substance: RITUXIMAB
     Dosage: 1400 MILLIGRAM (1400 MG ABS (DAY 7, R?HD?BCNU/TT X 4 CYCLES)
     Route: 058
  5. BICNU [Suspect]
     Active Substance: CARMUSTINE
     Indication: DIFFUSE LARGE B-CELL LYMPHOMA
     Dosage: 400 MILLIGRAM/SQ. METER (DAY6, R?HD?BCNU/TT)
     Route: 065
  6. THIOTEPA. [Suspect]
     Active Substance: THIOTEPA
     Indication: CENTRAL NERVOUS SYSTEM LYMPHOMA
     Dosage: UNK (2 ? 5 MG/M2 (DAY?5/ ?4, R?HD?BCNU/TT)
     Route: 065
  7. CYCLOPHOSPHAMIDE. [Suspect]
     Active Substance: CYCLOPHOSPHAMIDE
     Indication: CENTRAL NERVOUS SYSTEM LYMPHOMA
     Dosage: UNK
     Route: 065
  8. ACICLOVIR [Suspect]
     Active Substance: ACYCLOVIR
     Indication: PROPHYLAXIS
     Dosage: 800 MILLIGRAM (2?/DAY)
     Route: 065
  9. METHOTREXATE. [Suspect]
     Active Substance: METHOTREXATE
     Indication: CENTRAL NERVOUS SYSTEM LYMPHOMA
     Dosage: UNK
     Route: 065
  10. RITUXIMAB. [Suspect]
     Active Substance: RITUXIMAB
     Dosage: 1400 MILLIGRAM (1400 MG ABS (DAY 1, R?CHOP X 4 CYCLES)
     Route: 058
  11. CYTARABINE. [Suspect]
     Active Substance: CYTARABINE
     Indication: DIFFUSE LARGE B-CELL LYMPHOMA
     Dosage: 4 GRAM PER SQUARE METRE (DAY 1?2 R?ARAC/TT X 2 CYCLES)
     Route: 065
  12. THIOTEPA. [Suspect]
     Active Substance: THIOTEPA
     Indication: DIFFUSE LARGE B-CELL LYMPHOMA
     Dosage: 40 MILLIGRAM/SQ. METER (DAY 2, R?ARAC/TT X 2 CYCLES)
     Route: 065
  13. PREDNISONE. [Suspect]
     Active Substance: PREDNISONE
     Indication: DIFFUSE LARGE B-CELL LYMPHOMA
     Dosage: 100 MILLIGRAM (DAY 1?5, R?CHOP)
     Route: 042
  14. LEUCOVORINE [Suspect]
     Active Substance: LEUCOVORIN
     Indication: PRODUCT USED FOR UNKNOWN INDICATION
     Dosage: UNK
     Route: 065
  15. GRANULOCYTE COLONY STIMULATING FACTOR [Suspect]
     Active Substance: GRANULOCYTE COLONY-STIMULATING FACTOR NOS
     Indication: STEM CELL THERAPY
     Dosage: UNK (10 UG/KG BODY WEIGHT)
     Route: 065
  16. METHOTREXATE. [Suspect]
     Active Substance: METHOTREXATE
     Indication: DIFFUSE LARGE B-CELL LYMPHOMA
     Dosage: 4 GRAM PER SQUARE METRE (DAY 1, R?MTX)
     Route: 065
  17. CYTARABINE. [Suspect]
     Active Substance: CYTARABINE
     Indication: CENTRAL NERVOUS SYSTEM LYMPHOMA
     Dosage: UNK
     Route: 065
  18. BICNU [Suspect]
     Active Substance: CARMUSTINE
     Indication: CENTRAL NERVOUS SYSTEM LYMPHOMA
     Dosage: UNK
     Route: 065
  19. CYCLOPHOSPHAMIDE. [Suspect]
     Active Substance: CYCLOPHOSPHAMIDE
     Indication: DIFFUSE LARGE B-CELL LYMPHOMA
     Dosage: 750 MILLIGRAM/SQ. METER (DAY 1, R?CHOP)
     Route: 042
  20. VINCRISTINE [Suspect]
     Active Substance: VINCRISTINE
     Indication: DIFFUSE LARGE B-CELL LYMPHOMA
     Dosage: UNK (2 / 1 MG ABS (DAY 1, R?CHOP)
     Route: 042
  21. DOXORUBICIN [Suspect]
     Active Substance: DOXORUBICIN
     Indication: DIFFUSE LARGE B-CELL LYMPHOMA
     Dosage: 50 MILLIGRAM/SQ. METER (DAY 1, R?CHOP)
     Route: 042
  22. DOXORUBICIN [Suspect]
     Active Substance: DOXORUBICIN
     Indication: CENTRAL NERVOUS SYSTEM LYMPHOMA
     Dosage: UNK
     Route: 065
  23. RITUXIMAB. [Suspect]
     Active Substance: RITUXIMAB
     Indication: CENTRAL NERVOUS SYSTEM LYMPHOMA
     Dosage: 375 MILLIGRAM/SQ. METER (DAY 0, R?MTX)
     Route: 042
  24. RITUXIMAB. [Suspect]
     Active Substance: RITUXIMAB
     Indication: CENTRAL NERVOUS SYSTEM LYMPHOMA
     Dosage: 1400 MILLIGRAM (1400 MG ABS (DAY 1, R?ARAC/TT X 4 CYCLES)
     Route: 058
  25. RITUXIMAB. [Suspect]
     Active Substance: RITUXIMAB
     Indication: DIFFUSE LARGE B-CELL LYMPHOMA
     Dosage: 375 MILLIGRAM/SQ. METER (DAY 1, R?CHOP)
     Route: 042

REACTIONS (1)
  - Haematotoxicity [Unknown]
